FAERS Safety Report 25608951 (Version 1)
Quarter: 2025Q3

REPORT INFORMATION
  Report Type: Spontaneous
  Country: US (occurrence: US)
  Receive Date: 20250726
  Receipt Date: 20250726
  Transmission Date: 20251020
  Serious: No
  Sender: SANOFI AVENTIS
  Company Number: US-SANOFI-02601566

PATIENT

DRUGS (1)
  1. DUPIXENT [Suspect]
     Active Substance: DUPILUMAB
     Indication: Asthma
     Dates: start: 2025

REACTIONS (3)
  - Sunburn [Unknown]
  - Nerve compression [Unknown]
  - Discomfort [Unknown]

NARRATIVE: CASE EVENT DATE: 20250101
